FAERS Safety Report 21482922 (Version 1)
Quarter: 2022Q4

REPORT INFORMATION
  Report Type: Spontaneous
  Country: GB (occurrence: GB)
  Receive Date: 20221020
  Receipt Date: 20221020
  Transmission Date: 20230112
  Serious: Yes (Hospitalization)
  Sender: FDA-Public Use
  Company Number: GB-ALKEM LABORATORIES LIMITED-GB-ALKEM-2022-11012

PATIENT
  Age: 35 Year
  Sex: Male

DRUGS (10)
  1. METHADONE HYDROCHLORIDE [Suspect]
     Active Substance: METHADONE HYDROCHLORIDE
     Indication: Product used for unknown indication
     Route: 065
  2. MORPHINE SULFATE [Suspect]
     Active Substance: MORPHINE SULFATE
     Indication: Product used for unknown indication
     Dosage: UNK
     Route: 065
  3. HEROIN [Suspect]
     Active Substance: DIAMORPHINE
     Indication: Product used for unknown indication
     Dosage: UNK
     Route: 065
  4. COCAINE [Suspect]
     Active Substance: COCAINE
     Indication: Product used for unknown indication
     Dosage: UNK
     Route: 065
  5. CODEINE [Suspect]
     Active Substance: CODEINE
     Indication: Product used for unknown indication
     Dosage: UNK
     Route: 065
  6. METHAMPHETAMINE [Suspect]
     Active Substance: METHAMPHETAMINE
     Indication: Product used for unknown indication
     Dosage: UNK
     Route: 065
  7. ADB-HEXINACA [Suspect]
     Active Substance: ADB-HEXINACA
     Indication: Product used for unknown indication
     Dosage: UNK
     Route: 065
  8. MDMB-4EN-PINACA [Suspect]
     Active Substance: MDMB-4EN-PINACA
     Indication: Product used for unknown indication
     Dosage: UNK
     Route: 065
  9. 11-NOR-9-CARBOXY-.DELTA.9-TETRAHYDROCANNABINOL [Suspect]
     Active Substance: 11-NOR-9-CARBOXY-.DELTA.9-TETRAHYDROCANNABINOL
     Indication: Product used for unknown indication
     Dosage: UNK
     Route: 065
  10. 4F-MDMB-BINACA [Suspect]
     Active Substance: 4F-MDMB-BINACA
     Indication: Product used for unknown indication
     Dosage: UNK
     Route: 065

REACTIONS (4)
  - Agitation [Recovered/Resolved]
  - Vomiting [Recovered/Resolved]
  - Paranoia [Recovered/Resolved]
  - Intentional product misuse [Unknown]
